FAERS Safety Report 7920048-X (Version None)
Quarter: 2011Q4

REPORT INFORMATION
  Report Type: 
  Country: None (occurrence: None)
  Receive Date: 20111117
  Receipt Date: 20111104
  Transmission Date: 20120403
  Serious: Yes (Hospitalization)
  Sender: FDA-Public Use
  Company Number: CN-SANOFI-AVENTIS-2011SA072467

PATIENT
  Age: 40 Year
  Sex: Male
  Weight: 60 kg

DRUGS (4)
  1. LANTUS [Suspect]
     Indication: DIABETES MELLITUS
     Route: 058
     Dates: start: 20110901
  2. LANTUS [Suspect]
     Route: 058
     Dates: start: 20110301, end: 20110901
  3. LANTUS [Suspect]
     Route: 058
     Dates: start: 20081031, end: 20110301
  4. NOVOLIN 70/30 [Concomitant]
     Indication: DIABETES MELLITUS
     Dosage: 14IU IN THE MORNING AND 12IU IN THE EVENING
     Dates: start: 20081031

REACTIONS (2)
  - BLOOD GLUCOSE INCREASED [None]
  - DIABETIC KETOACIDOSIS [None]
